FAERS Safety Report 9499548 (Version 1)
Quarter: 2013Q3

REPORT INFORMATION
  Report Type: Spontaneous
  Country: US (occurrence: US)
  Receive Date: 20130905
  Receipt Date: 20130905
  Transmission Date: 20140515
  Serious: Yes (Death, Other)
  Sender: FDA-Public Use
  Company Number: US-BRISTOL-MYERS SQUIBB COMPANY-19228386

PATIENT
  Age: 89 Year
  Sex: Male
  Weight: 70.29 kg

DRUGS (1)
  1. MEGACE [Suspect]
     Indication: DECREASED APPETITE
     Dates: start: 20130817, end: 20130821

REACTIONS (8)
  - Death [Fatal]
  - Choking [Unknown]
  - Dyspnoea [Unknown]
  - Respiratory tract congestion [Unknown]
  - Cough [Unknown]
  - Somnolence [Unknown]
  - Lethargy [Unknown]
  - Body height decreased [Unknown]
